FAERS Safety Report 20483612 (Version 1)
Quarter: 2022Q1

REPORT INFORMATION
  Report Type: Spontaneous
  Country: ZA (occurrence: ZA)
  Receive Date: 20220217
  Receipt Date: 20220217
  Transmission Date: 20220424
  Serious: Yes (Hospitalization)
  Sender: FDA-Public Use
  Company Number: ZA-NOVOPROD-890765

PATIENT
  Age: 68 Year
  Sex: Female

DRUGS (3)
  1. ESTRADIOL HEMIHYDRATE [Suspect]
     Active Substance: ESTRADIOL HEMIHYDRATE
     Indication: Hormone therapy
     Dosage: 1 MG
     Route: 048
  2. STILPANE [CODEINE PHOSPHATE;PARACETAMOL;PROMETHAZINE HYDROCHLORIDE] [Concomitant]
     Indication: Pain
     Dosage: UNK
     Route: 048
  3. SULPIRIDE [Concomitant]
     Active Substance: SULPIRIDE
     Indication: Anxiety
     Dosage: 50 MG
     Route: 048

REACTIONS (1)
  - Knee arthroplasty [Recovering/Resolving]

NARRATIVE: CASE EVENT DATE: 20220117
